FAERS Safety Report 24414253 (Version 1)
Quarter: 2024Q4

REPORT INFORMATION
  Report Type: Spontaneous
  Country: CN (occurrence: CN)
  Receive Date: 20241009
  Receipt Date: 20241009
  Transmission Date: 20250115
  Serious: Yes (Hospitalization)
  Sender: CIPLA
  Company Number: CN-CIPLA LTD.-2024CN10985

PATIENT

DRUGS (6)
  1. ESOMEPRAZOLE [Suspect]
     Active Substance: ESOMEPRAZOLE
     Indication: Helicobacter test positive
     Dosage: UNK, LARGE DOSES
     Route: 065
  2. HYDROCORTISONE [Suspect]
     Active Substance: HYDROCORTISONE
     Indication: Hypopituitarism
     Dosage: 30 MILLIGRAM, QD, 20MG (8 AM) AND 10MG (4 PM) (TAKING 30MG QD FOR A LONG TIME)
     Route: 065
  3. DENOSUMAB [Suspect]
     Active Substance: DENOSUMAB
     Indication: Osteoporosis
     Dosage: UNK, 60 MG INJECTION
     Route: 058
  4. DESMOPRESSIN ACETATE [Concomitant]
     Active Substance: DESMOPRESSIN ACETATE
     Indication: Product used for unknown indication
     Dosage: 0.1 MILLIGRAM, TID
     Route: 065
  5. TESTOSTERONE UNDECANOATE [Concomitant]
     Active Substance: TESTOSTERONE UNDECANOATE
     Indication: Product used for unknown indication
     Dosage: 40 MILLIGRAM, TID
     Route: 065
  6. LEVOTHYROXINE [Concomitant]
     Active Substance: LEVOTHYROXINE
     Indication: Product used for unknown indication
     Dosage: 87.5 MICROGRAM, QD
     Route: 065

REACTIONS (1)
  - Hypocalcaemia [Recovered/Resolved]
